FAERS Safety Report 9786894 (Version 3)
Quarter: 2014Q1

REPORT INFORMATION
  Report Type: Not Available
  Country: US (occurrence: US)
  Receive Date: 20131227
  Receipt Date: 20140103
  Transmission Date: 20141002
  Serious: Yes (Hospitalization, Other)
  Sender: FDA-Public Use
  Company Number: US-ONYX-2013-2013

PATIENT
  Age: 69 Year
  Sex: Male

DRUGS (17)
  1. KYPROLIS [Suspect]
     Indication: PLASMA CELL MYELOMA
     Route: 042
     Dates: start: 20131002, end: 20131206
  2. NEUPOGEN [Concomitant]
     Indication: PRODUCT USED FOR UNKNOWN INDICATION
  3. DECADRON [Concomitant]
     Indication: PRODUCT USED FOR UNKNOWN INDICATION
  4. PROCHLORPERAZINE [Concomitant]
     Indication: NAUSEA
  5. LORAZEPAM [Concomitant]
     Indication: ANXIETY
  6. POMALYST [Concomitant]
     Indication: PRODUCT USED FOR UNKNOWN INDICATION
  7. ALFUZOSIN [Concomitant]
     Indication: PRODUCT USED FOR UNKNOWN INDICATION
  8. FEXOFENADINE [Concomitant]
     Indication: PRODUCT USED FOR UNKNOWN INDICATION
  9. FLONASE SPRAY [Concomitant]
     Indication: PRODUCT USED FOR UNKNOWN INDICATION
  10. HUMALOG INSULIN [Concomitant]
     Indication: PRODUCT USED FOR UNKNOWN INDICATION
  11. METOPROLOL [Concomitant]
     Indication: PRODUCT USED FOR UNKNOWN INDICATION
  12. CALCIUM [Concomitant]
     Indication: PRODUCT USED FOR UNKNOWN INDICATION
  13. SIMVASTATIN [Concomitant]
     Indication: PRODUCT USED FOR UNKNOWN INDICATION
  14. CLONAZEPAM [Concomitant]
     Indication: PRODUCT USED FOR UNKNOWN INDICATION
  15. CIALIS [Concomitant]
     Indication: PRODUCT USED FOR UNKNOWN INDICATION
  16. BACTRIM [Concomitant]
     Indication: PRODUCT USED FOR UNKNOWN INDICATION
  17. ACYCLOVIR [Concomitant]
     Indication: PRODUCT USED FOR UNKNOWN INDICATION

REACTIONS (8)
  - Electrocardiogram QT prolonged [Unknown]
  - Syncope [Recovered/Resolved]
  - Nasopharyngitis [Recovered/Resolved]
  - Drug ineffective [Not Recovered/Not Resolved]
  - Abdominal pain upper [Unknown]
  - Orthostatic intolerance [Unknown]
  - Weight decreased [Unknown]
  - Haemoglobin decreased [Not Recovered/Not Resolved]
